FAERS Safety Report 9244344 (Version 1)
Quarter: 2013Q1

REPORT INFORMATION
  Report Type: Spontaneous
  Country: US (occurrence: None)
  Receive Date: 20121130
  Receipt Date: 20121130
  Transmission Date: 20140127
  Serious: Yes (Other)
  Sender: FDA-Public Use
  Company Number: US201207005508

PATIENT
  Age: 50 Year
  Sex: Male

DRUGS (3)
  1. BYDUREON [Suspect]
     Indication: TYPE 2 DIABETES MELLITUS
     Dosage: 2 MG, WEEKLY (1/W/) SUBCUTANEOUS
     Route: 058
     Dates: start: 201206, end: 20120706
  2. BYETTA ( EXENATIDE) PEN, DISPOSABLE [Concomitant]
  3. METFORMIN ( METFORMIN) [Concomitant]

REACTIONS (6)
  - Dehydration [None]
  - Weight decreased [None]
  - Abdominal pain [None]
  - Vomiting [None]
  - Diarrhoea [None]
  - Decreased appetite [None]
